FAERS Safety Report 5886889-8 (Version None)
Quarter: 2008Q3

REPORT INFORMATION
  Report Type: 
  Country: None (occurrence: None)
  Receive Date: 20080917
  Receipt Date: 20080909
  Transmission Date: 20090109
  Serious: Yes (Death)
  Sender: FDA-Public Use
  Company Number: JP-AMGEN-US299428

PATIENT
  Sex: Male
  Weight: 81 kg

DRUGS (7)
  1. ENBREL [Suspect]
     Indication: RHEUMATOID ARTHRITIS
     Route: 058
     Dates: start: 20070906, end: 20080718
  2. RHEUMATREX [Concomitant]
     Indication: RHEUMATOID ARTHRITIS
     Route: 048
     Dates: start: 20001024
  3. RHEUMATREX [Concomitant]
     Route: 048
     Dates: end: 20071004
  4. RHEUMATREX [Concomitant]
     Route: 048
     Dates: start: 20071004
  5. PREDNISOLONE [Concomitant]
     Route: 048
     Dates: end: 20071205
  6. PREDNISOLONE [Concomitant]
     Route: 048
     Dates: start: 20071205
  7. SULFASALAZINE [Concomitant]
     Indication: RHEUMATOID ARTHRITIS
     Route: 048

REACTIONS (1)
  - MYOCARDIAL ISCHAEMIA [None]
